FAERS Safety Report 8174040-3 (Version None)
Quarter: 2012Q1

REPORT INFORMATION
  Report Type: 
  Country: None (occurrence: None)
  Receive Date: 20120227
  Receipt Date: 20120216
  Transmission Date: 20120608
  Serious: Yes (Other)
  Sender: FDA-Public Use
  Company Number: AUR-APL-2012-01091

PATIENT
  Age: 46 Year
  Sex: Female
  Weight: 109 kg

DRUGS (9)
  1. TRAZODONE HCL [Concomitant]
  2. LISINOPRIL W/HYDROCHLOROTHIAZIDE (PRINZIDE /00977901/) [Concomitant]
  3. RISPERIDONE [Suspect]
     Indication: AGITATION
     Dosage: 91 DOSAGE FORMS, 1 D), ORAL
     Route: 048
     Dates: start: 20120201
  4. RISPERIDONE [Suspect]
     Indication: DEPRESSION
     Dosage: 91 DOSAGE FORMS, 1 D), ORAL
     Route: 048
     Dates: start: 20120201
  5. RISPERIDONE [Suspect]
     Indication: IRRITABILITY
     Dosage: 91 DOSAGE FORMS, 1 D), ORAL
     Route: 048
     Dates: start: 20120201
  6. METFORMIN HCL [Concomitant]
  7. ATIVAN [Concomitant]
  8. CELEXA [Concomitant]
  9. NEURONTIN [Suspect]
     Indication: DIABETIC NEUROPATHY
     Dosage: 1200 MG (400 MG, 3 IN 1 D)
     Dates: start: 20100101

REACTIONS (6)
  - IRRITABILITY [None]
  - AGITATION [None]
  - DEPRESSION [None]
  - BACK PAIN [None]
  - FEELING ABNORMAL [None]
  - BLOOD PRESSURE INCREASED [None]
